FAERS Safety Report 6221122-9 (Version None)
Quarter: 2009Q2

REPORT INFORMATION
  Report Type: 
  Country: None (occurrence: None)
  Receive Date: 20090610
  Receipt Date: 20090602
  Transmission Date: 20091009
  Serious: Yes (Other)
  Sender: FDA-Public Use
  Company Number: B0578022A

PATIENT
  Sex: Female

DRUGS (5)
  1. ALBUTEROL [Suspect]
     Indication: DRUG USE FOR UNKNOWN INDICATION
     Route: 055
     Dates: start: 20090421, end: 20090101
  2. SERETIDE [Concomitant]
     Route: 055
  3. ULTRACET [Concomitant]
  4. IDARAC [Concomitant]
  5. IXPRIM [Concomitant]

REACTIONS (5)
  - ASTHMATIC CRISIS [None]
  - BRONCHOSPASM [None]
  - CHEST DISCOMFORT [None]
  - DYSGEUSIA [None]
  - PRODUCT QUALITY ISSUE [None]
